FAERS Safety Report 4413660-6 (Version None)
Quarter: 2004Q2

REPORT INFORMATION
  Report Type: 
  Country: None (occurrence: None)
  Receive Date: 20040630
  Receipt Date: 20040524
  Transmission Date: 20050107
  Serious: No
  Sender: FDA-Public Use
  Company Number: 04P-163-0261752-00

PATIENT
  Age: 64 Year
  Sex: Female
  Weight: 55.7924 kg

DRUGS (7)
  1. HUMIRA [Suspect]
     Indication: RHEUMATOID ARTHRITIS
     Dosage: 40 MG, 1 IN 2 WK, SUBCUTANEOUS
     Route: 058
     Dates: start: 20030601
  2. PREDNISONE TAB [Concomitant]
  3. BUCINDOLOL HYDROCHLORIDE [Concomitant]
  4. TRIAMTERENE [Concomitant]
  5. ESOMEPRAZOLE [Concomitant]
  6. SIMVASTATIN [Concomitant]
  7. RISEDRONATE SODIUM [Concomitant]

REACTIONS (1)
  - DRUG EFFECT DECREASED [None]
